FAERS Safety Report 9073844 (Version 1)
Quarter: 2013Q1

REPORT INFORMATION
  Report Type: Report from Study
  Country: US (occurrence: US)
  Receive Date: 20130129
  Receipt Date: 20130129
  Transmission Date: 20140127
  Serious: No
  Sender: FDA-Public Use
  Company Number: US-ABBOTT-12P-163-0918319-00

PATIENT
  Age: 40 Year
  Sex: Female

DRUGS (18)
  1. HUMIRA 40 MG/0.8 ML PEN [Suspect]
     Indication: CROHN^S DISEASE
     Dates: start: 20120220
  2. PENTASA [Concomitant]
     Indication: CROHN^S DISEASE
     Dosage: 2 TABS THREE TIMES A DAY
  3. EFFEXOR [Concomitant]
     Indication: DEPRESSION
     Dosage: 150 MG, 2 TABS DAILY
  4. NEURONTIN [Concomitant]
     Indication: HYPOAESTHESIA
  5. ENTOCORT [Concomitant]
     Indication: CROHN^S DISEASE
     Dosage: 3 TABS
  6. SINGULAR [Concomitant]
     Indication: HYPERSENSITIVITY
     Dosage: 10 MG, ONCE A DAY
  7. FLEXERIL [Concomitant]
     Indication: FIBROMYALGIA
     Dosage: 10 MG, 4 TABS A DAY
  8. FLEXERIL [Concomitant]
     Indication: INTERVERTEBRAL DISC PROTRUSION
  9. FLEXERIL [Concomitant]
     Indication: VULVITIS
  10. PEPCID [Concomitant]
     Indication: DYSPEPSIA
     Dosage: 20 MG, 2 TABS DAILY
  11. OMEPRAZOLE [Concomitant]
     Indication: DYSPEPSIA
     Dosage: 2 TABS
  12. MELATONIN [Concomitant]
     Indication: INSOMNIA
     Dosage: 2 TABS AT BEDTIME
  13. CELESTAMINE [Concomitant]
     Indication: DYSPEPSIA
     Dosage: ONE PACK AT NIGHT
  14. MOTILIUM [Concomitant]
     Indication: DYSPEPSIA
     Dosage: 10 MG, 7 TABS DAILY
  15. TRAMADOL [Concomitant]
     Indication: PAIN
  16. HYDROXYSTIM [Concomitant]
     Indication: PRODUCT USED FOR UNKNOWN INDICATION
     Dosage: 0.37, 2 TABS DAILY
  17. BENADRYL [Concomitant]
     Indication: SWELLING
     Dosage: DURING SPRING AND FALL ONCE A DAY
  18. BENADRYL [Concomitant]
     Indication: RESTLESSNESS
     Dosage: 25 MG, ONCE DAILY IN SPRING AND FALL

REACTIONS (5)
  - Condition aggravated [Not Recovered/Not Resolved]
  - Fatigue [Not Recovered/Not Resolved]
  - Condition aggravated [Not Recovered/Not Resolved]
  - Dyspnoea [Not Recovered/Not Resolved]
  - Dyspnoea [Not Recovered/Not Resolved]
